FAERS Safety Report 16143920 (Version 1)
Quarter: 2019Q2

REPORT INFORMATION
  Report Type: Spontaneous
  Country: GB (occurrence: GB)
  Receive Date: 20190401
  Receipt Date: 20190401
  Transmission Date: 20190711
  Serious: Yes (Life-Threatening)
  Sender: FDA-Public Use
  Company Number: GB-PFIZER INC-2019132705

PATIENT
  Age: 70 Year
  Sex: Male
  Weight: 66 kg

DRUGS (22)
  1. MACROGOL [Concomitant]
     Active Substance: POLYETHYLENE GLYCOLS
     Dosage: 4 DF, 1X/DAY
     Route: 048
     Dates: start: 20190128
  2. POTASSIUM CHLORIDE. [Concomitant]
     Active Substance: POTASSIUM CHLORIDE
     Dosage: 72 MMOL, 1X/DAY
     Route: 048
     Dates: start: 20190203
  3. CODEINE [Concomitant]
     Active Substance: CODEINE
     Dosage: 120 MG, 1X/DAY
     Route: 048
     Dates: start: 20190203
  4. OMEPRAZOLE. [Concomitant]
     Active Substance: OMEPRAZOLE
     Dosage: 20 MG, 1X/DAY
     Route: 048
     Dates: start: 20190203
  5. CHLORHEXIDINE GLUCONATE. [Concomitant]
     Active Substance: CHLORHEXIDINE GLUCONATE
     Dosage: 1 DF, 1X/DAY (APPLICATION)
     Route: 061
     Dates: start: 20190125
  6. ATORVASTATIN [Concomitant]
     Active Substance: ATORVASTATIN
     Dosage: 80 MG, 1X/DAY (AT NIGHT)
     Route: 048
     Dates: start: 20190130
  7. BACTERIOSTATIC SODIUM CHLORIDE [Suspect]
     Active Substance: SODIUM CHLORIDE
     Indication: LOWER RESPIRATORY TRACT INFECTION
     Dosage: 50 ML, UNK
     Route: 042
     Dates: start: 20190126, end: 20190203
  8. CYCLIZINE [Concomitant]
     Active Substance: CYCLIZINE
     Dosage: 150 MG, 1X/DAY
     Route: 042
     Dates: start: 20190124
  9. MORPHINE [Concomitant]
     Active Substance: MORPHINE
     Dosage: 20 MG, 1X/DAY
     Route: 048
     Dates: start: 20190126, end: 20190203
  10. MORPHINE [Concomitant]
     Active Substance: MORPHINE
     Dosage: 5 MG, EVERY 4 HOURS
     Route: 048
     Dates: start: 20190203
  11. FUROSEMIDE. [Concomitant]
     Active Substance: FUROSEMIDE
     Dosage: 40 MG, 1X/DAY (IN THE MORNING)
     Route: 048
     Dates: start: 20190203
  12. ACIDEX [CALCIUM CARBONATE;SODIUM ALGINATE;SODIUM BICARBONATE] [Concomitant]
     Dosage: 40 ML, 1X/DAY
     Route: 048
     Dates: start: 20190127
  13. ONDANSETRON [Concomitant]
     Active Substance: ONDANSETRON
     Dosage: 12 MG, 1X/DAY
     Route: 042
     Dates: start: 20190124
  14. MORPHINE [Concomitant]
     Active Substance: MORPHINE
     Dosage: 10 MG, EVERY 4 HOURS
     Route: 048
     Dates: start: 20190126, end: 20190126
  15. PARACETAMOL [Concomitant]
     Active Substance: ACETAMINOPHEN
     Dosage: 4 G, 1X/DAY
     Route: 050
     Dates: start: 20190124
  16. ASPIRIN [ACETYLSALICYLIC ACID] [Concomitant]
     Active Substance: ASPIRIN
     Dosage: 75 MG, 1X/DAY
     Route: 048
     Dates: start: 20190131
  17. DALTEPARIN [Concomitant]
     Active Substance: DALTEPARIN
     Dosage: 5000 IU, 1X/DAY
     Route: 058
     Dates: start: 20190125
  18. TAZOCIN [Suspect]
     Active Substance: PIPERACILLIN SODIUM\TAZOBACTAM SODIUM
     Indication: LOWER RESPIRATORY TRACT INFECTION
     Dosage: 4.5 G, EVERY 8 HOURS
     Route: 042
     Dates: start: 20190126, end: 20190203
  19. SODIUM CHLORIDE. [Concomitant]
     Active Substance: SODIUM CHLORIDE
     Dosage: 20 ML, 1X/DAY
     Route: 055
     Dates: start: 20190201
  20. CODEINE [Concomitant]
     Active Substance: CODEINE
     Dosage: 120 MG, 1X/DAY
     Route: 048
     Dates: start: 20190126, end: 20190126
  21. LEVOFLOXACIN. [Concomitant]
     Active Substance: LEVOFLOXACIN
     Dosage: 1000 MG, 1X/DAY
     Route: 042
     Dates: start: 20190203
  22. CARBOCISTEINE [Concomitant]
     Active Substance: CARBOCYSTEINE
     Dosage: 2250 MG, 1X/DAY
     Route: 048
     Dates: start: 20190202

REACTIONS (3)
  - Hypotension [Recovering/Resolving]
  - Feeling hot [Unknown]
  - Dyspnoea [Unknown]

NARRATIVE: CASE EVENT DATE: 20190203
